FAERS Safety Report 7031717-0 (Version None)
Quarter: 2010Q4

REPORT INFORMATION
  Report Type: 
  Country: None (occurrence: None)
  Receive Date: 20101007
  Receipt Date: 20101004
  Transmission Date: 20110411
  Serious: Yes (Other)
  Sender: FDA-Public Use
  Company Number: US-BIOGENIDEC-2010BI028478

PATIENT
  Age: 57 Year
  Sex: Female

DRUGS (2)
  1. AVONEX [Suspect]
     Indication: MULTIPLE SCLEROSIS
     Route: 030
     Dates: start: 19971101, end: 20030801
  2. AVONEX [Suspect]
     Route: 030
     Dates: start: 20030801

REACTIONS (7)
  - ARTHRALGIA [None]
  - DIABETES MELLITUS [None]
  - DYSGRAPHIA [None]
  - FATIGUE [None]
  - INJECTION SITE PAIN [None]
  - INSOMNIA [None]
  - MULTIPLE MYELOMA [None]
